FAERS Safety Report 21914056 (Version 1)
Quarter: 2023Q1

REPORT INFORMATION
  Report Type: Spontaneous
  Country: US (occurrence: US)
  Receive Date: 20230126
  Receipt Date: 20230126
  Transmission Date: 20230417
  Serious: No
  Sender: FDA-Public Use
  Company Number: US-ALLERGAN-2225527US

PATIENT
  Age: 41 Year
  Sex: Female
  Weight: 63.502 kg

DRUGS (5)
  1. BOTOX COSMETIC [Suspect]
     Active Substance: ONABOTULINUMTOXINA
     Indication: Skin wrinkling
     Dosage: 8 UNITS, SINGLE
     Route: 030
     Dates: start: 20220730, end: 20220730
  2. BOTOX COSMETIC [Suspect]
     Active Substance: ONABOTULINUMTOXINA
     Indication: Skin wrinkling
     Dosage: 88 UNITS, SINGLE
     Route: 030
     Dates: start: 20220730, end: 20220730
  3. COVID-19 VACCINE [Concomitant]
     Indication: COVID-19 immunisation
     Dosage: UNK UNK, SINGLE
     Route: 030
     Dates: start: 202112, end: 202112
  4. COVID-19 VACCINE [Concomitant]
     Dosage: UNK UNK, SINGLE
     Route: 030
  5. COVID-19 VACCINE [Concomitant]
     Dosage: UNK UNK, SINGLE
     Route: 030

REACTIONS (4)
  - Burning sensation [Recovered/Resolved]
  - Contusion [Not Recovered/Not Resolved]
  - Multiple use of single-use product [Unknown]
  - Off label use [Unknown]

NARRATIVE: CASE EVENT DATE: 20220730
